FAERS Safety Report 19575199 (Version 2)
Quarter: 2021Q3

REPORT INFORMATION
  Report Type: Spontaneous
  Country: FR (occurrence: FR)
  Receive Date: 20210719
  Receipt Date: 20210817
  Transmission Date: 20211014
  Serious: Yes (Hospitalization, Other)
  Sender: FDA-Public Use
  Company Number: NVSC2021FR154842

PATIENT
  Age: 37 Year
  Sex: Male

DRUGS (1)
  1. COSENTYX [Suspect]
     Active Substance: SECUKINUMAB
     Indication: ANKYLOSING SPONDYLITIS
     Dosage: 1 DF, QMO (1 INJECTION)
     Route: 065
     Dates: start: 2015

REACTIONS (7)
  - Peritonsillar abscess [Recovered/Resolved]
  - Tonsillitis bacterial [Unknown]
  - Tooth infection [Unknown]
  - Mouth haemorrhage [Unknown]
  - Oropharyngeal pain [Unknown]
  - Ankylosing spondylitis [Unknown]
  - Product dose omission issue [Unknown]

NARRATIVE: CASE EVENT DATE: 202105
